FAERS Safety Report 4846243-4 (Version None)
Quarter: 2005Q4

REPORT INFORMATION
  Report Type: 
  Country: None (occurrence: None)
  Receive Date: 20051202
  Receipt Date: 20051202
  Transmission Date: 20060501
  Serious: Yes (Hospitalization)
  Sender: FDA-Public Use
  Company Number: None

PATIENT
  Sex: Female

DRUGS (2)
  1. ZONEGRAN [Suspect]
     Indication: PETIT MAL EPILEPSY
     Dates: start: 20051018, end: 20051103
  2. LAMICTAL [Concomitant]

REACTIONS (1)
  - ERYTHEMA MULTIFORME [None]
